FAERS Safety Report 8542677-5 (Version None)
Quarter: 2012Q3

REPORT INFORMATION
  Report Type: 
  Country: None (occurrence: None)
  Receive Date: 20120727
  Receipt Date: 20120716
  Transmission Date: 20120928
  Serious: Yes (Hospitalization)
  Sender: FDA-Public Use
  Company Number: BR-AMGEN-BRASP2012045648

PATIENT
  Age: 55 Year
  Sex: Male
  Weight: 93 kg

DRUGS (4)
  1. ENBREL [Suspect]
     Indication: ANKYLOSING SPONDYLITIS
     Dosage: 50 MG, ONCE WEEKLY
     Route: 058
     Dates: start: 20120601
  2. METHOTREXATE [Concomitant]
     Dosage: UNK
  3. CAPTOPRIL [Concomitant]
     Dosage: UNK
  4. TRAMADOL HYDROCHLORIDE [Concomitant]
     Dosage: UNK

REACTIONS (5)
  - INJECTION SITE PAIN [None]
  - LIMB OPERATION [None]
  - WRONG TECHNIQUE IN DRUG USAGE PROCESS [None]
  - INFECTION [None]
  - BURNING SENSATION [None]
